FAERS Safety Report 19857030 (Version 1)
Quarter: 2021Q3

REPORT INFORMATION
  Report Type: Spontaneous
  Country: CA (occurrence: CA)
  Receive Date: 20210920
  Receipt Date: 20210920
  Transmission Date: 20211014
  Serious: Yes (Other)
  Sender: FDA-Public Use
  Company Number: CA-TEVA-2021-CA-1954429

PATIENT
  Age: 68 Year
  Sex: Male

DRUGS (9)
  1. ACETAMINOPHEN. [Suspect]
     Active Substance: ACETAMINOPHEN
     Route: 065
  2. CEFAZOLIN [Suspect]
     Active Substance: CEFAZOLIN
     Route: 065
  3. PROPOFOL. [Suspect]
     Active Substance: PROPOFOL
     Route: 065
  4. KETAMINE (UNKNOWN) [Suspect]
     Active Substance: KETAMINE
     Route: 065
  5. BUPIVACAINE 0.5% AND EPINEPHRINE 1:200,000 [Suspect]
     Active Substance: BUPIVACAINE\EPINEPHRINE
     Route: 065
  6. LIDOCAINE. [Suspect]
     Active Substance: LIDOCAINE
     Route: 065
  7. SALBUTAMOL [Suspect]
     Active Substance: ALBUTEROL
     Route: 065
  8. FENTANYL. [Suspect]
     Active Substance: FENTANYL
     Route: 065
  9. MIDAZOLAM (UNKNOWN) [Suspect]
     Active Substance: MIDAZOLAM HYDROCHLORIDE
     Route: 065

REACTIONS (1)
  - Anaphylactic reaction [Recovered/Resolved]
